FAERS Safety Report 5745348-3 (Version None)
Quarter: 2008Q2

REPORT INFORMATION
  Report Type: 
  Country: None (occurrence: None)
  Receive Date: 20080521
  Receipt Date: 20080508
  Transmission Date: 20081010
  Serious: Yes (Other)
  Sender: FDA-Public Use
  Company Number: JP-ASTRAZENECA-2008AP02913

PATIENT
  Age: 81 Year
  Sex: Male
  Weight: 60 kg

DRUGS (4)
  1. MEROPENEM [Suspect]
     Indication: PNEUMONIA ASPIRATION
     Route: 042
     Dates: start: 20071212, end: 20071216
  2. EBASTEL [Concomitant]
     Route: 048
     Dates: end: 20071211
  3. LASIX [Concomitant]
     Indication: CARDIAC FAILURE
     Route: 048
     Dates: start: 20060428, end: 20071211
  4. PENTCILLIN [Concomitant]
     Indication: PNEUMONIA ASPIRATION
     Route: 041
     Dates: start: 20071128, end: 20071211

REACTIONS (1)
  - RHABDOMYOLYSIS [None]
